FAERS Safety Report 23872016 (Version 3)
Quarter: 2024Q2

REPORT INFORMATION
  Report Type: Spontaneous
  Country: BD (occurrence: None)
  Receive Date: 20240520
  Receipt Date: 20240528
  Transmission Date: 20240716
  Serious: Yes (Other)
  Sender: FDA-Public Use
  Company Number: BD-ROCHE-3565791

PATIENT
  Age: 58 Year
  Sex: Female

DRUGS (2)
  1. KADCYLA [Suspect]
     Active Substance: ADO-TRASTUZUMAB EMTANSINE
     Indication: HER2 positive breast cancer
     Dosage: C2 WAS GIVEN ON 21/MAR/2024
     Route: 042
  2. PHESGO [Suspect]
     Active Substance: HYALURONIDASE-ZZXF\PERTUZUMAB\TRASTUZUMAB
     Indication: HER2 positive breast cancer
     Dosage: 1ST CYCLE
     Route: 058
     Dates: start: 20240518

REACTIONS (2)
  - Disease progression [Unknown]
  - Pain in extremity [Not Recovered/Not Resolved]
